FAERS Safety Report 5469723-X (Version None)
Quarter: 2007Q3

REPORT INFORMATION
  Report Type: 
  Country: None (occurrence: None)
  Receive Date: 20070926
  Receipt Date: 20070926
  Transmission Date: 20080115
  Serious: Yes (Hospitalization)
  Sender: FDA-Public Use
  Company Number: None

PATIENT
  Age: 76 Year
  Sex: Male

DRUGS (1)
  1. WARFARIN SODIUM [Suspect]
     Dosage: 2.5
     Dates: start: 19940101, end: 20070919

REACTIONS (2)
  - GASTRIC HAEMORRHAGE [None]
  - RECTAL HAEMORRHAGE [None]
